FAERS Safety Report 7098501-3 (Version None)
Quarter: 2010Q4

REPORT INFORMATION
  Report Type: 
  Country: None (occurrence: None)
  Receive Date: 20101112
  Receipt Date: 20101105
  Transmission Date: 20110411
  Serious: Yes (Hospitalization)
  Sender: FDA-Public Use
  Company Number: US-BAYER-201040262NA

PATIENT
  Age: 73 Year
  Sex: Male

DRUGS (7)
  1. NEXAVAR [Suspect]
     Indication: HEPATIC NEOPLASM MALIGNANT
     Route: 048
  2. CLONIDINE HCL [Concomitant]
     Dates: start: 20100226
  3. HYDROCODONE [Concomitant]
     Dates: start: 20100226
  4. IRON [Concomitant]
     Dosage: UNIT DOSE: 325 MG
     Dates: start: 20100226
  5. METFORMIN [Concomitant]
     Dosage: 1 TAB DAILY
     Dates: start: 20100226
  6. NADOLOL [Concomitant]
     Dates: start: 20100226
  7. PREVACID [Concomitant]
     Dosage: 1 TABLET
     Dates: start: 20100226

REACTIONS (1)
  - ENCEPHALOPATHY [None]
